FAERS Safety Report 14405311 (Version 1)
Quarter: 2018Q1

REPORT INFORMATION
  Report Type: Report from Study
  Country: DE (occurrence: DE)
  Receive Date: 20180118
  Receipt Date: 20180118
  Transmission Date: 20180509
  Serious: Yes (Hospitalization)
  Sender: FDA-Public Use
  Company Number: DE-ROCHE-2047905

PATIENT
  Age: 64 Year
  Sex: Male
  Weight: 77 kg

DRUGS (5)
  1. EUSAPRIM FORTE [Concomitant]
     Active Substance: SULFAMETHOXAZOLE\TRIMETHOPRIM
     Route: 048
     Dates: start: 20171106
  2. ACICLOVIR [Concomitant]
     Active Substance: ACYCLOVIR
     Route: 048
     Dates: start: 20171005
  3. PARACETAMOL [Concomitant]
     Active Substance: ACETAMINOPHEN
     Route: 048
     Dates: start: 20171225
  4. OBINUTUZUMAB. [Suspect]
     Active Substance: OBINUTUZUMAB
     Indication: CHRONIC LYMPHOCYTIC LEUKAEMIA
     Dosage: CYCLE 1: 100 MG, DAY 1 (D1); 900 MG, D2; 1000 MG, D8+15 AS PER PROTOCOL?LAST DOSE 1000 MG ON 28/NOV/
     Route: 042
     Dates: start: 20171003
  5. VENETOCLAX. [Suspect]
     Active Substance: VENETOCLAX
     Indication: CHRONIC LYMPHOCYTIC LEUKAEMIA
     Dosage: CYCLE 1: 20 MG (2 TABLETS AT 10MG), D22-28, Q28D AS PER PROTOCOL?LAST DOSE 400 MG ON 24/DEC/2017 PRI
     Route: 048
     Dates: start: 20171024

REACTIONS (1)
  - Urinary tract infection [Recovered/Resolved]

NARRATIVE: CASE EVENT DATE: 20171224
